FAERS Safety Report 9981357 (Version 1)
Quarter: 2014Q1

REPORT INFORMATION
  Report Type: Spontaneous
  Country: AU (occurrence: None)
  Receive Date: 20140305
  Receipt Date: 20140305
  Transmission Date: 20141002
  Serious: Yes (Disabling)
  Sender: FDA-Public Use
  Company Number: 201400059

PATIENT
  Age: 81 Year
  Sex: Female

DRUGS (5)
  1. ACEON (PERINDOPRIL ERBUMINE) TABLET [Suspect]
     Indication: HYPERTENSION
     Route: 048
     Dates: start: 20131023, end: 20131114
  2. PREMARIN (PREMARIN) [Concomitant]
  3. SOMAC (PANTOPRAZOLE SODIUM) [Concomitant]
  4. SYMBICORT (BUDESONIDE, FORMOTEROL FUMARATE) INHALER [Concomitant]
  5. CRESTOR (ROSUVASTATIN CALCIUM) [Concomitant]

REACTIONS (4)
  - Anosmia [None]
  - Ageusia [None]
  - Cough [None]
  - Hypertension [None]
